FAERS Safety Report 8553697-9 (Version None)
Quarter: 2012Q3

REPORT INFORMATION
  Report Type: 
  Country: None (occurrence: None)
  Receive Date: 20120731
  Receipt Date: 20120730
  Transmission Date: 20120928
  Serious: Yes (Hospitalization)
  Sender: FDA-Public Use
  Company Number: BE-ABBOTT-12P-013-0961670-00

PATIENT
  Sex: Female
  Weight: 77 kg

DRUGS (3)
  1. HUMIRA [Suspect]
     Indication: ANKYLOSING SPONDYLITIS
     Dates: start: 20100510
  2. MAXSOTEN [Concomitant]
     Indication: HYPERTENSION
     Dates: start: 20101101
  3. ACETYLSALICYLZUUR [Concomitant]
     Indication: CARDIOVASCULAR EVENT PROPHYLAXIS

REACTIONS (1)
  - OSTEOARTHRITIS [None]
